FAERS Safety Report 18412890 (Version 2)
Quarter: 2020Q4

REPORT INFORMATION
  Report Type: Spontaneous
  Country: US (occurrence: US)
  Receive Date: 20201021
  Receipt Date: 20201223
  Transmission Date: 20210114
  Serious: Yes (Other)
  Sender: FDA-Public Use
  Company Number: US-TEVA-2020-US-1839862

PATIENT
  Age: 57 Year
  Sex: Female

DRUGS (11)
  1. ROXICODONE [Concomitant]
     Active Substance: OXYCODONE HYDROCHLORIDE
     Dosage: 5 MG IMMEDIATE RELEASE TABLET
  2. VALSARTAN SUN [Suspect]
     Active Substance: VALSARTAN
     Dosage: DOSAGE: 80MG
     Route: 065
     Dates: start: 20170809, end: 20171107
  3. VALSARTAN AUROBINDO [Suspect]
     Active Substance: VALSARTAN
     Dosage: DOSAGE: 80MG
     Route: 065
     Dates: start: 20170913, end: 20181001
  4. LIPITOR [Concomitant]
     Active Substance: ATORVASTATIN CALCIUM
     Dosage: 40 MG TABLET, TAKE 40 MG BY MOUTH 1 (ONE) TIME EACH DAY
  5. LOSARTAN. [Concomitant]
     Active Substance: LOSARTAN
     Indication: HYPERTENSION
     Dates: end: 201901
  6. VALSARTAN SUN [Suspect]
     Active Substance: VALSARTAN
     Dosage: DOSAGE: 80MG
     Route: 065
     Dates: start: 20151218, end: 20160317
  7. HYDROCORTISONE. [Concomitant]
     Active Substance: HYDROCORTISONE
     Dosage: DOSAGE: 10MILLIGRAM IN MORNING 5MG IN AFTERNOON
  8. VALSARTAN CAMBER [Suspect]
     Active Substance: VALSARTAN
     Dosage: DOSAGE: 80MG
     Route: 065
     Dates: start: 20161212, end: 20170312
  9. LEVOTHYROXINE. [Concomitant]
     Active Substance: LEVOTHYROXINE
     Dosage: DOSAGE: 75MILLIGRAM DAILY
  10. FLUDROCORTISONE [Concomitant]
     Active Substance: FLUDROCORTISONE
     Dosage: DOSAGE: 0.05 MG DAILY
  11. SYNTHROID [Concomitant]
     Active Substance: LEVOTHYROXINE SODIUM

REACTIONS (10)
  - Adrenal gland cancer [Unknown]
  - Thyroid cancer [Unknown]
  - Metastatic renal cell carcinoma [Unknown]
  - Thyroid disorder [Recovered/Resolved]
  - Hyperglycaemia [Recovered/Resolved]
  - Adrenal insufficiency [Recovered/Resolved]
  - Renal cell carcinoma [Unknown]
  - Pancreatic carcinoma [Unknown]
  - Headache [Unknown]
  - Back pain [Unknown]

NARRATIVE: CASE EVENT DATE: 20180926
